FAERS Safety Report 10057717 (Version 1)
Quarter: 2014Q2

REPORT INFORMATION
  Report Type: Spontaneous
  Country: US (occurrence: US)
  Receive Date: 20140404
  Receipt Date: 20140404
  Transmission Date: 20141212
  Serious: No
  Sender: FDA-Public Use
  Company Number: US-BIOGENIDEC-2014BI003269

PATIENT
  Age: 40 Year
  Sex: Female

DRUGS (3)
  1. TECFIDERA [Suspect]
     Indication: PRODUCT USED FOR UNKNOWN INDICATION
  2. AMPYRA [Concomitant]
     Indication: GAIT DISTURBANCE
     Route: 048
     Dates: start: 20131022
  3. CITALOPRAM [Concomitant]

REACTIONS (4)
  - Urinary tract infection [Not Recovered/Not Resolved]
  - Dysuria [Not Recovered/Not Resolved]
  - Pain [Not Recovered/Not Resolved]
  - Diarrhoea [Recovered/Resolved]
